FAERS Safety Report 4523845-6 (Version None)
Quarter: 2004Q4

REPORT INFORMATION
  Report Type: 
  Country: None (occurrence: None)
  Receive Date: 20041208
  Receipt Date: 20041208
  Transmission Date: 20050328
  Serious: Yes (Death)
  Sender: FDA-Public Use
  Company Number: None

PATIENT
  Age: 41 Year
  Sex: Female

DRUGS (7)
  1. RISPERDAL CONSTA [Suspect]
     Indication: SCHIZOAFFECTIVE DISORDER
     Dosage: 50 MG IM Q 2 WEEKS
     Route: 030
     Dates: start: 20040706
  2. RISPERDAL CONSTA [Suspect]
     Indication: SCHIZOAFFECTIVE DISORDER
     Dosage: 50 MG IM Q 2 WEEKS
     Route: 030
     Dates: start: 20040721
  3. RISPERDAL CONSTA [Suspect]
     Indication: SCHIZOAFFECTIVE DISORDER
     Dosage: 50 MG IM Q 2 WEEKS
     Route: 030
     Dates: start: 20040804
  4. DEPAKOTE ER [Concomitant]
  5. KLONOPIN [Concomitant]
  6. ABILIFY [Concomitant]
  7. TRAZODONE HCL [Concomitant]

REACTIONS (1)
  - DEATH [None]
